FAERS Safety Report 4585466-9 (Version None)
Quarter: 2005Q1

REPORT INFORMATION
  Report Type: 
  Country: None (occurrence: None)
  Receive Date: 20050214
  Receipt Date: 20050201
  Transmission Date: 20050727
  Serious: Yes (Hospitalization)
  Sender: FDA-Public Use
  Company Number: 200416187BCC

PATIENT
  Age: 69 Year
  Sex: Female
  Weight: 72.5755 kg

DRUGS (6)
  1. ALEVE [Suspect]
     Indication: ARTHRALGIA
     Dosage: 220 MG, QD, ORAL
     Route: 048
     Dates: start: 20041207, end: 20041221
  2. NORVASC [Concomitant]
  3. PREMPRO [Concomitant]
  4. SYNTHROID [Concomitant]
  5. BONINE [Concomitant]
  6. ST. JOSEPH'S ASPIRIN [Concomitant]

REACTIONS (7)
  - BLOOD POTASSIUM DECREASED [None]
  - BLOOD PRESSURE FLUCTUATION [None]
  - DIZZINESS [None]
  - HYPOPHARYNGEAL NEOPLASM [None]
  - INNER EAR DISORDER [None]
  - NAUSEA [None]
  - VERTIGO [None]
